FAERS Safety Report 8854208 (Version 1)
Quarter: 2012Q4

REPORT INFORMATION
  Report Type: Spontaneous
  Country: US (occurrence: None)
  Receive Date: 20121019
  Receipt Date: 20121019
  Transmission Date: 20130627
  Serious: Yes (Other)
  Sender: FDA-Public Use
  Company Number: None

PATIENT
  Age: 69 Year
  Sex: Female
  Weight: 96 kg

DRUGS (2)
  1. YERVOY [Suspect]
     Indication: MELANOMA
     Route: 042
     Dates: start: 20121009, end: 20121009
  2. SYLATRON [Suspect]
     Indication: MELANOMA
     Route: 058
     Dates: start: 20121009, end: 20121009

REACTIONS (1)
  - Lacunar infarction [None]
